FAERS Safety Report 5459301-0 (Version None)
Quarter: 2007Q3

REPORT INFORMATION
  Report Type: 
  Country: None (occurrence: None)
  Receive Date: 20070919
  Receipt Date: 20070910
  Transmission Date: 20080115
  Serious: Yes (Other)
  Sender: FDA-Public Use
  Company Number: JP-ASTRAZENECA-2007AP05749

PATIENT
  Age: 29 Year
  Sex: Female

DRUGS (2)
  1. MARCAINE [Suspect]
     Route: 037
  2. FENTANYL [Concomitant]
     Route: 037

REACTIONS (2)
  - DRUG EXPOSURE DURING PREGNANCY [None]
  - FOETAL HEART RATE DECREASED [None]
